FAERS Safety Report 10403247 (Version 1)
Quarter: 2014Q3

REPORT INFORMATION
  Report Type: Spontaneous
  Country: US (occurrence: US)
  Receive Date: 20140822
  Receipt Date: 20140822
  Transmission Date: 20150326
  Serious: Yes (Hospitalization)
  Sender: FDA-Public Use
  Company Number: US-PFIZER INC-2014232970

PATIENT
  Age: 53 Year
  Sex: Female
  Weight: 67.12 kg

DRUGS (2)
  1. CELEBREX [Suspect]
     Active Substance: CELECOXIB
     Indication: BEHCET^S SYNDROME
     Dosage: 200 MG, 2X/DAY
     Dates: end: 20140818
  2. BIAXIN [Suspect]
     Active Substance: CLARITHROMYCIN
     Indication: BEHCET^S SYNDROME
     Dosage: UNK

REACTIONS (2)
  - Off label use [Unknown]
  - Pericarditis [Unknown]

NARRATIVE: CASE EVENT DATE: 2007
